FAERS Safety Report 5081763-1 (Version None)
Quarter: 2006Q3

REPORT INFORMATION
  Report Type: 
  Country: None (occurrence: None)
  Receive Date: 20060811
  Receipt Date: 20060728
  Transmission Date: 20061208
  Serious: Yes (Hospitalization)
  Sender: FDA-Public Use
  Company Number: DEU-2006-0002356

PATIENT
  Age: 55 Year
  Sex: Male
  Weight: 94 kg

DRUGS (7)
  1. OXYCODON 10MG / NALOXON 5MG(OXYCODONE HCL / NALOXONE HCL CR TAB 10 PRO [Suspect]
     Indication: BACK PAIN
     Dosage: SEE IMAGE
     Route: 048
     Dates: start: 20060104, end: 20060110
  2. OXYCODON 10MG / NALOXON 5MG(OXYCODONE HCL / NALOXONE HCL CR TAB 10 PRO [Suspect]
     Indication: BACK PAIN
     Dosage: SEE IMAGE
     Route: 048
     Dates: start: 20060111, end: 20060228
  3. OXYCODON 10MG / NALOXON 5MG(OXYCODONE HCL / NALOXONE HCL CR TAB 10 PRO [Suspect]
     Indication: BACK PAIN
     Dosage: SEE IMAGE
     Route: 048
     Dates: start: 20060301
  4. FURON (FUROSEMIDE) [Concomitant]
  5. PRESTARIUM (PERINDOPRIL) [Concomitant]
  6. VALPROATE SODIUM [Concomitant]
  7. DICLOFENAC SODIUM [Concomitant]

REACTIONS (2)
  - CHOLECYSTITIS ACUTE [None]
  - CHOLELITHIASIS [None]
